FAERS Safety Report 23987737 (Version 1)
Quarter: 2024Q2

REPORT INFORMATION
  Report Type: Spontaneous
  Country: SG (occurrence: SG)
  Receive Date: 20240619
  Receipt Date: 20240619
  Transmission Date: 20240716
  Serious: Yes (Other)
  Sender: FDA-Public Use
  Company Number: SG-STRIDES ARCOLAB LIMITED-2024SP007000

PATIENT
  Age: 39 Year
  Sex: Male

DRUGS (11)
  1. PREDNISOLONE [Suspect]
     Active Substance: PREDNISOLONE
     Indication: Vitritis
     Dosage: 0.5 MILLIGRAM/KILOGRAM
     Route: 048
  2. PREDNISOLONE [Suspect]
     Active Substance: PREDNISOLONE
     Dosage: 1 MILLIGRAM/KILOGRAM
     Route: 048
  3. PREDNISOLONE [Suspect]
     Active Substance: PREDNISOLONE
     Dosage: UNK (SLOW TAPER)
     Route: 048
  4. PREDNISOLONE [Suspect]
     Active Substance: PREDNISOLONE
     Dosage: 50 MILLIGRAM (PATIENT HIMSELF INCREASED)
     Route: 048
  5. GANCICLOVIR [Concomitant]
     Active Substance: GANCICLOVIR
     Indication: Vitritis
     Dosage: UNK
     Route: 065
  6. GANCICLOVIR [Concomitant]
     Active Substance: GANCICLOVIR
     Indication: Cytomegalovirus chorioretinitis
     Dosage: 2 MILLIGRAM PER 0.04ML TWO DOSES
  7. VALGANCICLOVIR [Concomitant]
     Active Substance: VALGANCICLOVIR
     Indication: Cytomegalovirus chorioretinitis
     Dosage: 900 MILLIGRAM, BID
     Route: 048
  8. VALGANCICLOVIR [Concomitant]
     Active Substance: VALGANCICLOVIR
     Indication: Vitritis
     Dosage: 900 MILLIGRAM, OD (DOSE REDUCED)
     Route: 048
  9. PREDNISOLONE ACETATE [Concomitant]
     Active Substance: PREDNISOLONE ACETATE
     Indication: Vitritis
     Dosage: UNK
     Route: 065
  10. FOSCARNET [Concomitant]
     Active Substance: FOSCARNET
     Indication: Vitritis
     Dosage: 1.2 MILLIGRAM PER 0.05ML 4 DOSES IN RIGHT EYE
  11. FOSCARNET [Concomitant]
     Active Substance: FOSCARNET
     Dosage: UNK (THREE ADDITIONAL DOSES)

REACTIONS (2)
  - Intentional product misuse [Unknown]
  - Cytomegalovirus chorioretinitis [Recovered/Resolved]
